FAERS Safety Report 20239023 (Version 1)
Quarter: 2021Q4

REPORT INFORMATION
  Report Type: Spontaneous
  Country: NO (occurrence: NO)
  Receive Date: 20211228
  Receipt Date: 20211228
  Transmission Date: 20220303
  Serious: Yes (Hospitalization)
  Sender: FDA-Public Use
  Company Number: None

PATIENT
  Age: 34 Year
  Sex: Male

DRUGS (1)
  1. TEMODAL [Suspect]
     Active Substance: TEMOZOLOMIDE
     Indication: Astrocytoma
     Dosage: 400 MILLIGRAM, QD
     Route: 042
     Dates: start: 20210826, end: 20211018

REACTIONS (1)
  - Demyelination [Recovered/Resolved]

NARRATIVE: CASE EVENT DATE: 20211006
